FAERS Safety Report 5780278-2 (Version None)
Quarter: 2008Q2

REPORT INFORMATION
  Report Type: 
  Country: None (occurrence: None)
  Receive Date: 20080620
  Receipt Date: 20080620
  Transmission Date: 20081010
  Serious: Yes (Hospitalization)
  Sender: FDA-Public Use
  Company Number: PHHO2007GB04794

PATIENT
  Sex: Male

DRUGS (1)
  1. ZOLEDRONIC ACID [Suspect]
     Indication: OSTEITIS DEFORMANS
     Dosage: 5MG
     Dates: start: 20030225

REACTIONS (3)
  - CONCOMITANT DISEASE PROGRESSION [None]
  - KNEE ARTHROPLASTY [None]
  - OSTEOARTHRITIS [None]
